FAERS Safety Report 15028581 (Version 1)
Quarter: 2018Q2

REPORT INFORMATION
  Report Type: Spontaneous
  Country: US (occurrence: US)
  Receive Date: 20180618
  Receipt Date: 20180618
  Transmission Date: 20180711
  Serious: Yes (Hospitalization, Other)
  Sender: FDA-Public Use
  Company Number: None

PATIENT
  Age: 25 Year
  Sex: Male
  Weight: 72 kg

DRUGS (2)
  1. KRATOM [Suspect]
     Active Substance: MITRAGYNINE\HERBALS
     Indication: ANXIETY
  2. KRATOM [Suspect]
     Active Substance: MITRAGYNINE\HERBALS
     Indication: DEPRESSION

REACTIONS (8)
  - Hallucination, auditory [None]
  - Psychotic disorder [None]
  - Weight decreased [None]
  - Asocial behaviour [None]
  - Disturbance in attention [None]
  - Anxiety [None]
  - Hallucination [None]
  - Drug dependence [None]

NARRATIVE: CASE EVENT DATE: 20171217
